FAERS Safety Report 13071416 (Version 1)
Quarter: 2016Q4

REPORT INFORMATION
  Report Type: Spontaneous
  Country: US (occurrence: US)
  Receive Date: 20161228
  Receipt Date: 20161228
  Transmission Date: 20170207
  Serious: Yes (Other)
  Sender: FDA-Public Use
  Company Number: None

PATIENT
  Age: 35 Year
  Sex: Female
  Weight: 124.85 kg

DRUGS (1)
  1. VALACYCLOVIR 1 GM [Suspect]
     Active Substance: VALACYCLOVIR HYDROCHLORIDE

REACTIONS (2)
  - Condition aggravated [None]
  - Swelling [None]

NARRATIVE: CASE EVENT DATE: 20150702
